FAERS Safety Report 14149463 (Version 8)
Quarter: 2018Q1

REPORT INFORMATION
  Report Type: Report from Study
  Country: CA (occurrence: CA)
  Receive Date: 20171101
  Receipt Date: 20180123
  Transmission Date: 20180508
  Serious: Yes (Hospitalization, Other)
  Sender: FDA-Public Use
  Company Number: PHHY2017CA159299

PATIENT
  Age: 60 Year
  Sex: Male

DRUGS (6)
  1. COSENTYX [Suspect]
     Active Substance: SECUKINUMAB
     Dosage: 300 OT, QW
     Route: 058
     Dates: start: 20171025
  2. COSENTYX [Suspect]
     Active Substance: SECUKINUMAB
     Dosage: 300 MG, QMO
     Route: 058
  3. COSENTYX [Suspect]
     Active Substance: SECUKINUMAB
     Indication: PSORIASIS
     Dosage: 300 OT, QW
     Route: 058
     Dates: start: 20171004
  4. GABAPENTIN. [Concomitant]
     Active Substance: GABAPENTIN
     Indication: PRODUCT USED FOR UNKNOWN INDICATION
     Dosage: 1 DF (300 MG), TID
     Route: 065
  5. COSENTYX [Suspect]
     Active Substance: SECUKINUMAB
     Dosage: 300 MG, QMO
     Route: 058
     Dates: start: 20171101
  6. CICLOSPORIN [Suspect]
     Active Substance: CYCLOSPORINE
     Indication: PRODUCT USED FOR UNKNOWN INDICATION
     Route: 065

REACTIONS (16)
  - Localised infection [Recovering/Resolving]
  - Cellulitis [Unknown]
  - Fluid retention [Unknown]
  - Productive cough [Unknown]
  - Obesity [Unknown]
  - Peripheral venous disease [Unknown]
  - Mobility decreased [Unknown]
  - Osteoarthritis [Unknown]
  - Heart rate irregular [Unknown]
  - Arrhythmia [Unknown]
  - Pain [Unknown]
  - Varicose vein [Unknown]
  - Dyspnoea [Unknown]
  - Pulmonary congestion [Unknown]
  - Clostridium difficile infection [Unknown]
  - Oedema [Unknown]

NARRATIVE: CASE EVENT DATE: 20171013
